FAERS Safety Report 6512381-3 (Version None)
Quarter: 2009Q4

REPORT INFORMATION
  Report Type: 
  Country: None (occurrence: None)
  Receive Date: 20091222
  Receipt Date: 20091218
  Transmission Date: 20100525
  Serious: Yes (Other)
  Sender: FDA-Public Use
  Company Number: US-ALLERGAN-0917496US

PATIENT
  Age: 47 Year
  Sex: Female

DRUGS (1)
  1. CYCLOSPORINE UNK [Suspect]
     Indication: IMMUNOSUPPRESSION

REACTIONS (1)
  - NEUROENDOCRINE CARCINOMA OF THE SKIN [None]
